FAERS Safety Report 7831096-2 (Version None)
Quarter: 2011Q4

REPORT INFORMATION
  Report Type: 
  Country: None (occurrence: None)
  Receive Date: 20111021
  Receipt Date: 20111019
  Transmission Date: 20120403
  Serious: Yes (Hospitalization, Other)
  Sender: FDA-Public Use
  Company Number: PHHY2011ES92084

PATIENT
  Age: 58 Year
  Sex: Male

DRUGS (3)
  1. PEMETREXED [Interacting]
     Indication: LUNG CARCINOMA CELL TYPE UNSPECIFIED STAGE IV
     Dates: start: 20110609, end: 20110629
  2. ZOMETA [Suspect]
     Indication: LUNG CARCINOMA CELL TYPE UNSPECIFIED STAGE IV
     Dosage: 4 MG/ 100 ML
     Route: 042
     Dates: start: 20110609, end: 20110629
  3. CISPLATIN [Interacting]
     Indication: LUNG CARCINOMA CELL TYPE UNSPECIFIED STAGE IV
     Dates: start: 20110609, end: 20110629

REACTIONS (4)
  - PLATELET COUNT DECREASED [None]
  - HAEMOGLOBIN DECREASED [None]
  - HAEMATOTOXICITY [None]
  - DRUG INTERACTION [None]
